FAERS Safety Report 5680836-X (Version None)
Quarter: 2008Q1

REPORT INFORMATION
  Report Type: 
  Country: None (occurrence: None)
  Receive Date: 20080326
  Receipt Date: 20080314
  Transmission Date: 20080703
  Serious: Yes (Hospitalization, Other)
  Sender: FDA-Public Use
  Company Number: US-PFIZER INC-2008024012

PATIENT
  Sex: Female
  Weight: 72.6 kg

DRUGS (8)
  1. CHANTIX [Suspect]
     Dates: start: 20070101, end: 20070101
  2. GEODON [Suspect]
     Indication: DEPRESSION
  3. GEODON [Suspect]
     Indication: BIPOLAR DISORDER
  4. ZOLOFT [Concomitant]
  5. AMITRIPTYLINE HCL [Concomitant]
  6. TOPAMAX [Concomitant]
  7. INDERAL [Concomitant]
  8. IMITREX [Concomitant]
     Indication: MIGRAINE

REACTIONS (6)
  - DEPRESSION [None]
  - EMOTIONAL DISORDER [None]
  - FEELING ABNORMAL [None]
  - SOMNOLENCE [None]
  - SUICIDAL IDEATION [None]
  - SWOLLEN TONGUE [None]
